FAERS Safety Report 4754782-X (Version None)
Quarter: 2005Q3

REPORT INFORMATION
  Report Type: 
  Country: None (occurrence: None)
  Receive Date: 20050829
  Receipt Date: 20050815
  Transmission Date: 20060218
  Serious: Yes (Other)
  Sender: FDA-Public Use
  Company Number: 2005AC01226

PATIENT
  Age: 7787 Day
  Sex: Female
  Weight: 55 kg

DRUGS (2)
  1. SEROQUEL [Suspect]
     Route: 048
     Dates: start: 20050802, end: 20050804
  2. OXAZEPAM [Suspect]
     Dates: start: 20050701, end: 20050804

REACTIONS (6)
  - BACK PAIN [None]
  - COORDINATION ABNORMAL [None]
  - MIOSIS [None]
  - SOMNOLENCE [None]
  - TONGUE DISORDER [None]
  - URINARY INCONTINENCE [None]
